FAERS Safety Report 10720775 (Version 1)
Quarter: 2015Q1

REPORT INFORMATION
  Report Type: Spontaneous
  Country: US (occurrence: US)
  Receive Date: 20150119
  Receipt Date: 20150119
  Transmission Date: 20150721
  Serious: No
  Sender: FDA-Public Use
  Company Number: US-PFIZER INC-2015017424

PATIENT
  Age: 66 Year
  Sex: Female

DRUGS (2)
  1. SUTENT [Suspect]
     Active Substance: SUNITINIB MALATE
     Indication: NEUROENDOCRINE TUMOUR
     Dosage: 37.5 MG, 1X/DAY, 2 WEEKS ON OFF 1 WEEK
     Dates: start: 20140408
  2. SUTENT [Suspect]
     Active Substance: SUNITINIB MALATE
     Dosage: 12.5 MG, UNK
     Dates: start: 201407

REACTIONS (6)
  - Gait disturbance [Recovered/Resolved]
  - Decreased appetite [Recovered/Resolved]
  - Myalgia [Recovered/Resolved]
  - Rash [Recovered/Resolved]
  - Blister [Recovered/Resolved]
  - Arthralgia [Recovered/Resolved]

NARRATIVE: CASE EVENT DATE: 201405
